FAERS Safety Report 9149317 (Version 2)
Quarter: 2013Q2

REPORT INFORMATION
  Report Type: Spontaneous
  Country: US (occurrence: US)
  Receive Date: 20130308
  Receipt Date: 20130401
  Transmission Date: 20140414
  Serious: Yes (Other)
  Sender: FDA-Public Use
  Company Number: US-BRISTOL-MYERS SQUIBB COMPANY-17428483

PATIENT
  Age: 31 Year
  Sex: Female

DRUGS (5)
  1. ORENCIA [Suspect]
     Indication: RHEUMATOID ARTHRITIS
     Route: 042
     Dates: start: 201209
  2. COLCHICINE [Concomitant]
  3. METHOTREXATE [Concomitant]
     Indication: CONTRACEPTION
  4. LEVSIN [Concomitant]
  5. DICLOFENAC [Concomitant]

REACTIONS (1)
  - Pericardial effusion [Recovering/Resolving]
